FAERS Safety Report 24446176 (Version 3)
Quarter: 2024Q4

REPORT INFORMATION
  Report Type: Report from Study
  Country: BR (occurrence: BR)
  Receive Date: 20241016
  Receipt Date: 20241223
  Transmission Date: 20250115
  Serious: No
  Sender: NOVARTIS
  Company Number: BR-002147023-NVSC2024BR197048

PATIENT
  Age: 46 Year
  Sex: Female

DRUGS (1)
  1. KESIMPTA [Suspect]
     Active Substance: OFATUMUMAB
     Indication: Multiple sclerosis
     Dosage: UNK
     Route: 065
     Dates: start: 20241002

REACTIONS (21)
  - Blood pressure decreased [Recovering/Resolving]
  - Tinnitus [Unknown]
  - Cold sweat [Recovering/Resolving]
  - Pallor [Unknown]
  - Hypoacusis [Unknown]
  - Vision blurred [Unknown]
  - Nervousness [Unknown]
  - Injection site pain [Recovered/Resolved]
  - Pyrexia [Recovered/Resolved]
  - Pain [Unknown]
  - Headache [Unknown]
  - Hypotension [Unknown]
  - Pruritus [Recovered/Resolved]
  - Musculoskeletal stiffness [Unknown]
  - Illness [Unknown]
  - Sensitive skin [Unknown]
  - Gait disturbance [Unknown]
  - Muscle rigidity [Unknown]
  - Mood altered [Unknown]
  - Insomnia [Unknown]
  - Malaise [Unknown]

NARRATIVE: CASE EVENT DATE: 20241002
